FAERS Safety Report 11177458 (Version 1)
Quarter: 2015Q2

REPORT INFORMATION
  Report Type: Report from Study
  Country: ES (occurrence: ES)
  Receive Date: 20150610
  Receipt Date: 20150610
  Transmission Date: 20150821
  Serious: Yes (Hospitalization)
  Sender: FDA-Public Use
  Company Number: ES-BAYER-2015-278597

PATIENT
  Age: 81 Year
  Sex: Male

DRUGS (10)
  1. DONEPEZIL [Concomitant]
     Active Substance: DONEPEZIL
     Dosage: 10 MG, 0-0-1
  2. ADIRO 100 MG GASTRO-RESISTANT TABLETS, 30 TABLETS [Suspect]
     Active Substance: ASPIRIN
     Indication: ATRIAL FIBRILLATION
     Dosage: 100 MG, QD
     Route: 048
     Dates: start: 201407
  3. BISOPROLOL [BISOPROLOL] [Concomitant]
     Dosage: 2.5 MG, 1-0-1
  4. ATORVASTATIN [Concomitant]
     Active Substance: ATORVASTATIN
     Dosage: 80 MG, 0-0-1
  5. TICAGRELOR [Interacting]
     Active Substance: TICAGRELOR
     Indication: ATRIAL FIBRILLATION
     Dosage: 180 MG, QD
     Dates: start: 201408
  6. QUETIAPINE [Concomitant]
     Active Substance: QUETIAPINE
     Dosage: 25 MG, 0-0-1
  7. UNIBENESTAN [Concomitant]
     Dosage: 10 MG, 1-0-0
  8. ENALAPRIL [ENALAPRIL] [Concomitant]
     Dosage: 20 MG, 1-0-0
  9. ENALAPRIL [ENALAPRIL] [Concomitant]
     Dosage: 20 MG, 0-1-0
  10. ALLOPURINOL. [Concomitant]
     Active Substance: ALLOPURINOL
     Dosage: 300 MG, 1-0-0

REACTIONS (2)
  - Radiation proctitis [Recovered/Resolved]
  - Lower gastrointestinal haemorrhage [Recovered/Resolved]

NARRATIVE: CASE EVENT DATE: 20140909
